FAERS Safety Report 8422558 (Version 7)
Quarter: 2013Q2

REPORT INFORMATION
  Report Type: Spontaneous
  Country: US (occurrence: US)
  Receive Date: 20120223
  Receipt Date: 20130405
  Transmission Date: 20140414
  Serious: Yes (Hospitalization, Other)
  Sender: FDA-Public Use
  Company Number: US-PFIZER INC-2012046669

PATIENT
  Age: 63 Year
  Sex: Female
  Weight: 67.12 kg

DRUGS (5)
  1. NEURONTIN [Suspect]
     Indication: TRIGEMINAL NEURALGIA
     Dosage: UNK
     Route: 048
     Dates: start: 2008
  2. LYRICA [Suspect]
     Indication: TRIGEMINAL NEURALGIA
     Dosage: 150 MG, 2X/DAY
     Route: 048
     Dates: start: 2010
  3. LYRICA [Suspect]
     Dosage: 225 MG, 2X/DAY
     Route: 048
     Dates: end: 201202
  4. LYRICA [Suspect]
     Dosage: 75 MG, UNK
     Route: 048
  5. FLAXSEED OIL [Concomitant]
     Dosage: UNK

REACTIONS (10)
  - Drug ineffective [Unknown]
  - Pain [Unknown]
  - Hypertension [Unknown]
  - Trigeminal neuralgia [Unknown]
  - Pain [Unknown]
  - Feeling abnormal [Unknown]
  - Weight decreased [Unknown]
  - Mastication disorder [Unknown]
  - Lacrimation increased [Unknown]
  - Headache [Unknown]
